FAERS Safety Report 17350073 (Version 1)
Quarter: 2020Q1

REPORT INFORMATION
  Report Type: Spontaneous
  Country: DK (occurrence: DK)
  Receive Date: 20200130
  Receipt Date: 20200130
  Transmission Date: 20200409
  Serious: Yes (Life-Threatening)
  Sender: FDA-Public Use
  Company Number: DK-GUERBET-DK-20200003

PATIENT
  Age: 53 Year
  Sex: Female

DRUGS (10)
  1. EUTHYROX [Concomitant]
     Active Substance: LEVOTHYROXINE SODIUM
     Indication: HYPOTHYROIDISM
     Route: 048
     Dates: start: 20170109
  2. METOCLOPRAMIDE ^ORIFARM^ [Concomitant]
     Indication: NAUSEA
     Route: 048
     Dates: start: 20170831
  3. FORMO EASYHALER [Concomitant]
     Indication: BRONCHOSPASM
     Route: 055
     Dates: start: 20171129
  4. PREGABALIN. [Concomitant]
     Active Substance: PREGABALIN
     Indication: PAIN
     Route: 048
     Dates: start: 20140112
  5. OPTIRAY [Suspect]
     Active Substance: IOVERSOL
     Dosage: STYRKE: 350 MG IOD/ML.
     Dates: start: 20191230
  6. OPTIRAY [Suspect]
     Active Substance: IOVERSOL
     Indication: SCAN WITH CONTRAST
     Route: 042
     Dates: start: 20191230
  7. FOLIMET [Concomitant]
     Active Substance: FOLIC ACID
     Indication: ADVERSE REACTION
     Route: 048
     Dates: start: 20180606
  8. OXYCODONE DEPOT ^SANDOZ^ [Concomitant]
     Indication: PAIN
     Route: 048
     Dates: start: 20140113, end: 20200103
  9. PINEX [Concomitant]
     Indication: PAIN
     Route: 048
     Dates: start: 20191108
  10. NICOTINELL [Concomitant]
     Active Substance: NICOTINE
     Indication: SMOKING CESSATION THERAPY
     Route: 003
     Dates: start: 20191108

REACTIONS (6)
  - Myocardial infarction [Recovered/Resolved]
  - Anaphylactic shock [Recovered/Resolved]
  - Respiratory failure [Recovered/Resolved]
  - Foaming at mouth [Recovered/Resolved]
  - Malaise [Recovered/Resolved]
  - Hypersensitivity [Recovered/Resolved]

NARRATIVE: CASE EVENT DATE: 20191230
